FAERS Safety Report 25161193 (Version 1)
Quarter: 2025Q2

REPORT INFORMATION
  Report Type: Spontaneous
  Country: US (occurrence: US)
  Receive Date: 20250404
  Receipt Date: 20250404
  Transmission Date: 20250716
  Serious: Yes (Other)
  Sender: AMGEN
  Company Number: US-AMGEN-USASP2025059635

PATIENT
  Age: 54 Year
  Sex: Male

DRUGS (2)
  1. RITUXIMAB [Suspect]
     Active Substance: RITUXIMAB
     Indication: Waldenstrom^s macroglobulinaemia
     Route: 065
  2. BENDAMUSTINE [Concomitant]
     Active Substance: BENDAMUSTINE
     Indication: Waldenstrom^s macroglobulinaemia

REACTIONS (9)
  - Diverticulitis [Unknown]
  - Colonic abscess [Unknown]
  - Cerebral infarction [Unknown]
  - Aortitis [Unknown]
  - Enterocutaneous fistula [Unknown]
  - Escherichia bacteraemia [Unknown]
  - Aortic aneurysm [Unknown]
  - Unintentional medical device removal [Unknown]
  - Arthralgia [Unknown]
